FAERS Safety Report 11735000 (Version 1)
Quarter: 2015Q4

REPORT INFORMATION
  Report Type: Spontaneous
  Country: US (occurrence: US)
  Receive Date: 20151113
  Receipt Date: 20151113
  Transmission Date: 20160304
  Serious: Yes (Other)
  Sender: FDA-Public Use
  Company Number: US-PFIZER INC-2015382423

PATIENT
  Age: 60 Year
  Sex: Male
  Weight: 90 kg

DRUGS (1)
  1. VIAGRA [Suspect]
     Active Substance: SILDENAFIL CITRATE
     Indication: ERECTILE DYSFUNCTION
     Dosage: 100 MG, MAYBE 4 TIMES A MONTH
     Route: 048
     Dates: end: 20151031

REACTIONS (10)
  - Blindness [Not Recovered/Not Resolved]
  - Visual acuity reduced [Unknown]
  - Optic disc haemorrhage [Unknown]
  - Visual impairment [Unknown]
  - Vision blurred [Unknown]
  - Photopsia [Unknown]
  - Vitreous floaters [Unknown]
  - Papilloedema [Unknown]
  - Visual brightness [Unknown]
  - Chromatopsia [Unknown]

NARRATIVE: CASE EVENT DATE: 20151031
